FAERS Safety Report 5152145-9 (Version None)
Quarter: 2006Q4

REPORT INFORMATION
  Report Type: 
  Country: None (occurrence: None)
  Receive Date: 20061116
  Receipt Date: 20060901
  Transmission Date: 20070319
  Serious: No
  Sender: FDA-Public Use
  Company Number: IE-BRISTOL-MYERS SQUIBB COMPANY-13496799

PATIENT
  Age: 20 Year
  Sex: Female
  Weight: 57 kg

DRUGS (1)
  1. KENALOG-40 [Suspect]
     Indication: SEASONAL ALLERGY
     Route: 030
     Dates: start: 20060401

REACTIONS (1)
  - INJECTION SITE FIBROSIS [None]
